FAERS Safety Report 6468677-7 (Version None)
Quarter: 2009Q4

REPORT INFORMATION
  Report Type: 
  Country: None (occurrence: None)
  Receive Date: 20091203
  Receipt Date: 20091120
  Transmission Date: 20100525
  Serious: Yes (Hospitalization)
  Sender: FDA-Public Use
  Company Number: JP-ROCHE-645201

PATIENT
  Sex: Female
  Weight: 59 kg

DRUGS (3)
  1. XELODA [Suspect]
     Indication: BREAST CANCER METASTATIC
     Dosage: DRUG: XELODA 300 ACTION TAKEN: DISCONTINUED. NOTE: 2 WEEKS ADMINISTRATION FOLLOWED BY 1 WEEK REST.
     Route: 048
     Dates: start: 20090302, end: 20090608
  2. OXYCONTIN [Suspect]
     Indication: CANCER PAIN
     Dosage: FORM: SUSTAINED RELEASE TABLET
     Route: 048
     Dates: start: 20090223
  3. OXINORM [Suspect]
     Indication: CANCER PAIN
     Route: 048
     Dates: start: 20090223

REACTIONS (3)
  - DYSPHAGIA [None]
  - HYPOAESTHESIA ORAL [None]
  - TONGUE PARALYSIS [None]
